FAERS Safety Report 6416006-7 (Version None)
Quarter: 2009Q4

REPORT INFORMATION
  Report Type: 
  Country: None (occurrence: None)
  Receive Date: 20091027
  Receipt Date: 20091026
  Transmission Date: 20100525
  Serious: Yes (Hospitalization)
  Sender: FDA-Public Use
  Company Number: NL-ABBOTT-09P-114-0600320-00

PATIENT
  Sex: Female
  Weight: 55 kg

DRUGS (5)
  1. HUMIRA [Suspect]
     Indication: PSORIASIS
     Route: 058
     Dates: start: 20080425
  2. HUMIRA [Suspect]
     Route: 058
     Dates: end: 20081001
  3. PREDNISON [Concomitant]
     Indication: ARTHRITIS
     Route: 048
     Dates: start: 20090701
  4. CALCI-CHEW [Concomitant]
     Indication: DRUG USE FOR UNKNOWN INDICATION
  5. ACTONEL [Concomitant]
     Indication: DRUG USE FOR UNKNOWN INDICATION

REACTIONS (9)
  - ARTHRITIS [None]
  - BLOOD TEST ABNORMAL [None]
  - C-REACTIVE PROTEIN INCREASED [None]
  - DRUG SPECIFIC ANTIBODY PRESENT [None]
  - FATIGUE [None]
  - PLATELET COUNT INCREASED [None]
  - SERUM SICKNESS-LIKE REACTION [None]
  - WEIGHT DECREASED [None]
  - WHITE BLOOD CELL COUNT INCREASED [None]
